FAERS Safety Report 14472424 (Version 2)
Quarter: 2018Q1

REPORT INFORMATION
  Report Type: Spontaneous
  Country: US (occurrence: US)
  Receive Date: 20180201
  Receipt Date: 20180201
  Transmission Date: 20180509
  Serious: Yes (Hospitalization, Other)
  Sender: FDA-Public Use
  Company Number: PHEH2018US002852

PATIENT
  Age: 66 Year
  Sex: Male
  Weight: 74.84 kg

DRUGS (4)
  1. CEFEPIME [Suspect]
     Active Substance: CEFEPIME HYDROCHLORIDE
     Indication: PNEUMONIA
     Dosage: UNK UNK, TID
     Route: 041
     Dates: start: 20170822, end: 20170908
  2. CICLOSPORIN [Suspect]
     Active Substance: CYCLOSPORINE
     Indication: LIVER TRANSPLANT
     Dosage: 75 MG, BID
     Route: 048
     Dates: start: 201709
  3. CICLOSPORIN [Suspect]
     Active Substance: CYCLOSPORINE
     Indication: IMMUNOSUPPRESSION
     Dosage: 50 MG, BID
     Route: 048
  4. RAPAMUNE [Suspect]
     Active Substance: SIROLIMUS
     Indication: LIVER TRANSPLANT
     Dosage: 1 MG, QD
     Route: 065
     Dates: start: 2014, end: 201709

REACTIONS (7)
  - Pneumonia pseudomonal [Unknown]
  - Renal disorder [Not Recovered/Not Resolved]
  - Immunosuppressant drug level decreased [Unknown]
  - Glomerular filtration rate decreased [Unknown]
  - Encephalopathy [Recovered/Resolved]
  - Renal injury [Recovering/Resolving]
  - Protein urine present [Unknown]

NARRATIVE: CASE EVENT DATE: 201708
